FAERS Safety Report 9255468 (Version 1)
Quarter: 2013Q2

REPORT INFORMATION
  Report Type: Spontaneous
  Country: US (occurrence: None)
  Receive Date: 20130423
  Receipt Date: 20130423
  Transmission Date: 20140414
  Serious: Yes (Other)
  Sender: FDA-Public Use
  Company Number: None

PATIENT
  Age: 25 Year
  Sex: Female
  Weight: 72.58 kg

DRUGS (2)
  1. VENLAFAXINE [Suspect]
     Indication: DEPRESSION
     Dosage: ONCE DAILY  PO
     Route: 048
     Dates: start: 20130327, end: 20130410
  2. VENLAFAXINE [Suspect]
     Indication: PAIN
     Dosage: ONCE DAILY  PO
     Route: 048
     Dates: start: 20130327, end: 20130410

REACTIONS (6)
  - Nightmare [None]
  - Obsessive thoughts [None]
  - Hostility [None]
  - Depression [None]
  - Mania [None]
  - Physical assault [None]
